FAERS Safety Report 4571166-8 (Version None)
Quarter: 2005Q1

REPORT INFORMATION
  Report Type: 
  Country: None (occurrence: None)
  Receive Date: 20050202
  Receipt Date: 20050119
  Transmission Date: 20050727
  Serious: Yes (Hospitalization)
  Sender: FDA-Public Use
  Company Number: FR_050105630

PATIENT
  Age: 64 Year
  Sex: Male

DRUGS (5)
  1. PERGOLIDE MESYLATE [Suspect]
     Indication: PARKINSON'S DISEASE
     Dosage: 1.5 MG/3 DAY
  2. DIFRAREL [Concomitant]
  3. MODOPAR [Concomitant]
  4. COMTAN [Concomitant]
  5. VITAMIN B-12 [Concomitant]

REACTIONS (6)
  - AORTIC VALVE INCOMPETENCE [None]
  - CARDIAC MURMUR [None]
  - MITRAL VALVE INCOMPETENCE [None]
  - PULMONARY VALVE INCOMPETENCE [None]
  - TRICUSPID VALVE INCOMPETENCE [None]
  - VENTRICULAR HYPERTROPHY [None]
